FAERS Safety Report 22773557 (Version 4)
Quarter: 2024Q2

REPORT INFORMATION
  Report Type: Spontaneous
  Country: US (occurrence: US)
  Receive Date: 20230801
  Receipt Date: 20240606
  Transmission Date: 20240715
  Serious: No
  Sender: FDA-Public Use
  Company Number: US-PFIZER INC-PV202300107639

PATIENT
  Age: 10 Year
  Sex: Female

DRUGS (1)
  1. OXBRYTA [Suspect]
     Active Substance: VOXELOTOR
     Dosage: 900 MG, 1X/DAY (300 MG, 3 TABLETS ONCE DAILY)
     Route: 048

REACTIONS (1)
  - Nausea [Not Recovered/Not Resolved]
